FAERS Safety Report 19885032 (Version 1)
Quarter: 2021Q3

REPORT INFORMATION
  Report Type: Spontaneous
  Country: US (occurrence: US)
  Receive Date: 20210924
  Receipt Date: 20210924
  Transmission Date: 20211014
  Serious: No
  Sender: FDA-Public Use
  Company Number: None

PATIENT
  Sex: Female

DRUGS (1)
  1. IBRANCE [Suspect]
     Active Substance: PALBOCICLIB
     Indication: BREAST CANCER
     Dosage: TAKE 1 TABLET BY MOUTH 1 TIME A DAY ON DAYS 1 TO 21 OF A 28?DAY CYCLE.
     Route: 048
     Dates: start: 20210807

REACTIONS (5)
  - Confusional state [None]
  - Pain [None]
  - Therapy interrupted [None]
  - Burning sensation [None]
  - Constipation [None]
